FAERS Safety Report 17920922 (Version 3)
Quarter: 2020Q3

REPORT INFORMATION
  Report Type: Other
  Country: CA (occurrence: CA)
  Receive Date: 20200622
  Receipt Date: 20200928
  Transmission Date: 20201103
  Serious: Yes (Other)
  Sender: FDA-Public Use
  Company Number: CA-APOTEX-2020AP012272

PATIENT
  Age: 53 Year
  Sex: Female

DRUGS (64)
  1. NAPROXEN SODIUM. [Suspect]
     Active Substance: NAPROXEN SODIUM
     Indication: PRURITUS
     Dosage: UNK
     Route: 065
  2. CEPHALEXIN. [Suspect]
     Active Substance: CEPHALEXIN
     Indication: VOMITING
     Dosage: UNK
     Route: 065
  3. CEPHALEXIN. [Suspect]
     Active Substance: CEPHALEXIN
     Indication: MALAISE
  4. CELEBREX [Suspect]
     Active Substance: CELECOXIB
     Indication: OESOPHAGEAL PAIN
     Dosage: UNK
     Route: 065
  5. SENOKOT [Suspect]
     Active Substance: SENNOSIDES
     Indication: ABDOMINAL PAIN
     Dosage: UNK
     Route: 065
  6. VIOXX [Suspect]
     Active Substance: ROFECOXIB
     Indication: URTICARIA
     Dosage: UNK
     Route: 065
  7. WELLBUTRIN [Suspect]
     Active Substance: BUPROPION HYDROCHLORIDE
     Indication: URTICARIA
     Dosage: UNK
     Route: 065
  8. CEPHALEXIN [CEFALEXIN] [Suspect]
     Active Substance: CEPHALEXIN
     Indication: VOMITING
     Dosage: UNK
     Route: 065
  9. CEPHALEXIN [CEFALEXIN] [Suspect]
     Active Substance: CEPHALEXIN
     Indication: MALAISE
  10. FIASP [Suspect]
     Active Substance: INSULIN ASPART
     Indication: TYPE 2 DIABETES MELLITUS
     Dosage: UNK
     Route: 065
  11. APO?K [Suspect]
     Active Substance: POTASSIUM CHLORIDE
     Indication: PRODUCT USED FOR UNKNOWN INDICATION
     Dosage: 1 DOSAGE FORM, TID
     Route: 065
  12. ATROVENT HFA [Suspect]
     Active Substance: IPRATROPIUM BROMIDE
     Indication: PRODUCT USED FOR UNKNOWN INDICATION
     Dosage: UNK
     Route: 065
  13. INDOMETHACIN AGILA [Suspect]
     Active Substance: INDOMETHACIN SODIUM
     Indication: VOMITING
     Dosage: UNK
     Route: 065
  14. INDOMETHACIN AGILA [Suspect]
     Active Substance: INDOMETHACIN SODIUM
     Indication: VISION BLURRED
  15. ALEVE [Suspect]
     Active Substance: NAPROXEN SODIUM
     Indication: PRURITUS
     Dosage: UNK
     Route: 065
  16. CEPHALEXIN [CEFALEXIN] [Suspect]
     Active Substance: CEPHALEXIN
     Indication: DIZZINESS
  17. APO FUROSEMIDE [Suspect]
     Active Substance: FUROSEMIDE
     Indication: FLUID RETENTION
     Dosage: UNK
     Route: 065
  18. GABAPENTIN. [Suspect]
     Active Substance: GABAPENTIN
     Indication: PRODUCT USED FOR UNKNOWN INDICATION
     Dosage: UNK
     Route: 065
  19. INDOMETHACIN. [Suspect]
     Active Substance: INDOMETHACIN
     Indication: VOMITING
     Dosage: UNK
     Route: 065
  20. POTASSIUM CHLORIDE. [Suspect]
     Active Substance: POTASSIUM CHLORIDE
     Dosage: UNK UNK, TID (1 DOSE UNIT UNSPECIFIED)
     Route: 065
  21. BREO ELLIPTA [Suspect]
     Active Substance: FLUTICASONE FUROATE\VILANTEROL TRIFENATATE
     Dosage: UNK, QD (DOSE 1 UNIT UNSPECIFIED)
     Route: 065
  22. PENICILLIN G [BENZYLPENICILLIN] [Suspect]
     Active Substance: PENICILLIN G
     Indication: PRODUCT USED FOR UNKNOWN INDICATION
     Dosage: UNK
     Route: 065
  23. APO?CEFUROXIME [Suspect]
     Active Substance: CEFUROXIME AXETIL
     Indication: DIARRHOEA
  24. MOXIFLOXACIN. [Suspect]
     Active Substance: MOXIFLOXACIN
     Indication: RASH
     Dosage: UNK
     Route: 065
  25. APO?FERROUS GLUCONATE [Suspect]
     Active Substance: FERROUS GLUCONATE
     Indication: IRON DEFICIENCY
     Dosage: UNK
     Route: 065
  26. CEPHALEXIN. [Suspect]
     Active Substance: CEPHALEXIN
     Indication: DIZZINESS
  27. MACROBID [Suspect]
     Active Substance: NITROFURANTOIN\NITROFURANTOIN MONOHYDRATE
     Indication: CYSTITIS
     Dosage: UNK
     Route: 065
  28. INSULINE [INSULIN PORCINE] [Suspect]
     Active Substance: INSULIN PORK\INSULIN PURIFIED PORK
     Indication: TYPE 2 DIABETES MELLITUS
     Dosage: UNK
     Route: 065
  29. APO?SULFATRIM [Suspect]
     Active Substance: SULFAMETHOXAZOLE\TRIMETHOPRIM
     Indication: STOMATITIS
     Dosage: UNK
     Route: 065
  30. PREDNISONE. [Suspect]
     Active Substance: PREDNISONE
     Indication: PRODUCT USED FOR UNKNOWN INDICATION
     Dosage: UNK
     Route: 065
  31. SALBUTAMOL [Suspect]
     Active Substance: ALBUTEROL
     Indication: PRODUCT USED FOR UNKNOWN INDICATION
     Dosage: 2 DOSAGE FORM
     Route: 065
  32. SALBUTAMOL [Suspect]
     Active Substance: ALBUTEROL
     Dosage: UNK
     Route: 065
  33. BUPROPION. [Suspect]
     Active Substance: BUPROPION
     Indication: URTICARIA
     Dosage: UNK
     Route: 065
  34. CYMBALTA [Suspect]
     Active Substance: DULOXETINE HYDROCHLORIDE
     Dosage: UNK, QD (DOSE 1 UNIT UNSPECIFIED)
     Route: 065
  35. FOSAVANCE [Suspect]
     Active Substance: ALENDRONATE SODIUM\CHOLECALCIFEROL
     Indication: OSTEOPOROSIS POSTMENOPAUSAL
     Dosage: 1 DOSAGE FORM, Q.WK.
     Route: 065
  36. GRAVOL [Suspect]
     Active Substance: DIMENHYDRINATE
     Indication: ANXIETY
     Dosage: UNK
     Route: 065
  37. SPIRIVA [Suspect]
     Active Substance: TIOTROPIUM BROMIDE MONOHYDRATE
     Indication: PRODUCT USED FOR UNKNOWN INDICATION
     Dosage: UNK
     Route: 065
  38. BREO ELLIPTA [Suspect]
     Active Substance: FLUTICASONE FUROATE\VILANTEROL TRIFENATATE
     Indication: PRODUCT USED FOR UNKNOWN INDICATION
     Dosage: 1 DOSAGE FORM, QD
     Route: 065
  39. INDOMETHACIN AGILA [Suspect]
     Active Substance: INDOMETHACIN SODIUM
     Indication: ABDOMINAL PAIN UPPER
  40. NITROLINGUAL [Suspect]
     Active Substance: NITROGLYCERIN
     Indication: OESOPHAGEAL SPASM
     Dosage: UNK
     Route: 065
  41. NOVO?FURANTOIN [Suspect]
     Active Substance: NITROFURANTOIN
     Indication: CYSTITIS
     Dosage: UNK
     Route: 065
  42. AMITRIPTYLINE [Suspect]
     Active Substance: AMITRIPTYLINE
     Indication: DEPRESSION
     Dosage: UNK
     Route: 065
  43. INDOMETHACIN. [Suspect]
     Active Substance: INDOMETHACIN
     Indication: ABDOMINAL PAIN UPPER
  44. CLOPIDOGREL [Suspect]
     Active Substance: CLOPIDOGREL BISULFATE
     Indication: ANTICOAGULANT THERAPY
     Dosage: 1 DOSAGE FORM, QD
     Route: 065
  45. CLOPIDOGREL [Suspect]
     Active Substance: CLOPIDOGREL BISULFATE
     Dosage: UNK, QD (DOSE 1 UNIT UNSPECIFIED)
     Route: 065
  46. GLYCERYL TRINITRATE [Suspect]
     Active Substance: NITROGLYCERIN
     Indication: OESOPHAGEAL SPASM
     Dosage: UNK
     Route: 065
  47. TYLENOL WITH CODEINE [Suspect]
     Active Substance: ACETAMINOPHEN\CODEINE PHOSPHATE
     Indication: PRURITUS
     Dosage: UNK
     Route: 065
  48. APO?CEFUROXIME [Suspect]
     Active Substance: CEFUROXIME AXETIL
     Indication: MALAISE
     Dosage: UNK
     Route: 065
  49. APO?CEFUROXIME [Suspect]
     Active Substance: CEFUROXIME AXETIL
     Indication: FATIGUE
  50. CIPROFLOXACIN. [Suspect]
     Active Substance: CIPROFLOXACIN
     Indication: URTICARIA
     Dosage: UNK
     Route: 065
  51. INDOMETHACIN. [Suspect]
     Active Substance: INDOMETHACIN
     Indication: VISION BLURRED
  52. PENICILLIN [Suspect]
     Active Substance: PENICILLIN
     Indication: PRODUCT USED FOR UNKNOWN INDICATION
     Dosage: UNK
     Route: 065
  53. POTASSIUM CHLORIDE. [Suspect]
     Active Substance: POTASSIUM CHLORIDE
     Indication: PRODUCT USED FOR UNKNOWN INDICATION
     Dosage: 1 DOSAGE FORM, TID
     Route: 065
  54. COVERSYL                           /00790702/ [Suspect]
     Active Substance: PERINDOPRIL
     Indication: BLOOD PRESSURE MEASUREMENT
     Dosage: 1 DOSAGE FORM, QD
     Route: 065
  55. CYMBALTA [Suspect]
     Active Substance: DULOXETINE HYDROCHLORIDE
     Indication: DEPRESSION
     Dosage: 1 DOSAGE FORM, QD
     Route: 065
  56. CYMBALTA [Suspect]
     Active Substance: DULOXETINE HYDROCHLORIDE
     Indication: ANXIETY
     Dosage: UNK
     Route: 065
  57. KETAMINE [Suspect]
     Active Substance: KETAMINE
     Indication: HALLUCINATION
     Dosage: UNK
     Route: 065
  58. NOVORAPID [Suspect]
     Active Substance: INSULIN ASPART
     Indication: TYPE 2 DIABETES MELLITUS
     Dosage: UNK
     Route: 065
  59. NITROFURANTOIN. [Suspect]
     Active Substance: NITROFURANTOIN
     Indication: CYSTITIS
     Dosage: UNK
     Route: 065
  60. CELEBREX [Suspect]
     Active Substance: CELECOXIB
     Indication: ABDOMINAL PAIN UPPER
  61. COVERSYL                           /00790702/ [Suspect]
     Active Substance: PERINDOPRIL
     Dosage: UNK (DOSE 1 UNIT UNSPECIFIED)
     Route: 065
  62. FOSAVANCE [Suspect]
     Active Substance: ALENDRONATE SODIUM\CHOLECALCIFEROL
     Dosage: UNK UNK, Q.WK. (DOSE 1 UNIT UNSPECIFIED)
     Route: 065
  63. FLOVENT [Suspect]
     Active Substance: FLUTICASONE PROPIONATE
     Indication: CHRONIC OBSTRUCTIVE PULMONARY DISEASE
     Dosage: UNK
     Route: 065
  64. FLOVENT [Suspect]
     Active Substance: FLUTICASONE PROPIONATE
     Indication: ASTHMA
     Dosage: 1 DOSAGE FORM, BID
     Route: 065

REACTIONS (30)
  - Cystitis [Unknown]
  - Fibromyalgia [Unknown]
  - Depression [Unknown]
  - Agitation [Unknown]
  - Urticaria [Unknown]
  - Feeling abnormal [Unknown]
  - Pneumonia [Unknown]
  - Diarrhoea [Unknown]
  - Vision blurred [Unknown]
  - Fluid retention [Unknown]
  - Pruritus [Unknown]
  - Tinnitus [Unknown]
  - Sleep apnoea syndrome [Unknown]
  - Rash [Unknown]
  - Stomatitis [Unknown]
  - Vomiting [Unknown]
  - Myocardial infarction [Unknown]
  - Fatigue [Unknown]
  - Malaise [Unknown]
  - Oesophageal pain [Unknown]
  - Dizziness [Unknown]
  - Bronchitis [Unknown]
  - Migraine [Unknown]
  - Hallucination [Unknown]
  - Anxiety [Unknown]
  - Abdominal pain upper [Unknown]
  - Lymphoedema [Unknown]
  - Hyperhidrosis [Unknown]
  - Abdominal pain [Unknown]
  - Oesophageal spasm [Unknown]
